FAERS Safety Report 10235294 (Version 2)
Quarter: 2014Q3

REPORT INFORMATION
  Report Type: Spontaneous
  Country: US (occurrence: US)
  Receive Date: 20140613
  Receipt Date: 20140711
  Transmission Date: 20150326
  Serious: Yes (Other)
  Sender: FDA-Public Use
  Company Number: US-PFIZER INC-2014162898

PATIENT
  Age: 57 Year
  Sex: Female
  Weight: 81.6 kg

DRUGS (5)
  1. EFFEXOR XR [Suspect]
     Active Substance: VENLAFAXINE HYDROCHLORIDE
     Dosage: UNK
  2. MIRTAZAPINE. [Concomitant]
     Active Substance: MIRTAZAPINE
     Indication: DEPRESSION
     Dosage: UNK, DAILY
  3. PRISTIQ EXTENDED RELEASE [Suspect]
     Active Substance: DESVENLAFAXINE SUCCINATE
     Indication: ANXIETY
  4. PRISTIQ EXTENDED RELEASE [Suspect]
     Active Substance: DESVENLAFAXINE SUCCINATE
     Indication: MAJOR DEPRESSION
     Dosage: 100 MG, DAILY
     Dates: start: 2013
  5. PRISTIQ EXTENDED RELEASE [Suspect]
     Active Substance: DESVENLAFAXINE SUCCINATE
     Indication: SUICIDAL IDEATION

REACTIONS (5)
  - Suicidal ideation [Unknown]
  - Depression [Unknown]
  - Mental impairment [Unknown]
  - Dyspnoea [Unknown]
  - Anger [Unknown]

NARRATIVE: CASE EVENT DATE: 201402
